FAERS Safety Report 19100026 (Version 1)
Quarter: 2021Q2

REPORT INFORMATION
  Report Type: Spontaneous
  Country: HU (occurrence: HU)
  Receive Date: 20210407
  Receipt Date: 20210407
  Transmission Date: 20210717
  Serious: Yes (Disabling)
  Sender: FDA-Public Use
  Company Number: HU-009507513-2104HUN000340

PATIENT
  Sex: Female

DRUGS (1)
  1. INTRON A [Suspect]
     Active Substance: INTERFERON ALFA-2B
     Indication: METASTATIC MALIGNANT MELANOMA
     Dosage: 3X3 UNIT/WEEK FOR 24 MONTHS
     Dates: start: 201010, end: 201204

REACTIONS (6)
  - Fatigue [Unknown]
  - Off label use [Unknown]
  - Therapeutic product effect decreased [Unknown]
  - Generalised anxiety disorder [Unknown]
  - Panic disorder [Not Recovered/Not Resolved]
  - Malaise [Unknown]

NARRATIVE: CASE EVENT DATE: 201010
